FAERS Safety Report 11597860 (Version 4)
Quarter: 2016Q2

REPORT INFORMATION
  Report Type: Spontaneous
  Country: US (occurrence: US)
  Receive Date: 20151006
  Receipt Date: 20160530
  Transmission Date: 20160815
  Serious: Yes (Other)
  Sender: FDA-Public Use
  Company Number: US-JNJFOC-20150904254

PATIENT
  Age: 84 Year
  Sex: Male
  Weight: 88.45 kg

DRUGS (3)
  1. LEVAQUIN [Suspect]
     Active Substance: LEVOFLOXACIN
     Indication: URINARY TRACT INFECTION
     Route: 048
     Dates: start: 20140714
  2. CIPRO [Suspect]
     Active Substance: CIPROFLOXACIN HYDROCHLORIDE
     Indication: URINARY TRACT INFECTION
     Route: 065
     Dates: start: 20140623, end: 20140714
  3. LEVAQUIN [Suspect]
     Active Substance: LEVOFLOXACIN
     Indication: URINARY TRACT INFECTION
     Route: 048
     Dates: start: 20140708, end: 20140728

REACTIONS (19)
  - Prostatic pain [Unknown]
  - Micturition frequency decreased [Unknown]
  - Amnesia [Unknown]
  - Deafness [Unknown]
  - Paraesthesia [Unknown]
  - Urinary tract infection [Recovered/Resolved]
  - Pruritus [Unknown]
  - Back pain [Unknown]
  - Vision blurred [Unknown]
  - Drug ineffective [Unknown]
  - Tendon pain [Unknown]
  - Dry eye [Unknown]
  - Nausea [Unknown]
  - Weight fluctuation [Unknown]
  - Abdominal pain [Unknown]
  - Peripheral swelling [Unknown]
  - Balance disorder [Unknown]
  - Peripheral motor neuropathy [Not Recovered/Not Resolved]
  - Pain in extremity [Unknown]

NARRATIVE: CASE EVENT DATE: 2014
